FAERS Safety Report 9560345 (Version 1)
Quarter: 2013Q3

REPORT INFORMATION
  Report Type: Spontaneous
  Country: MX (occurrence: MX)
  Receive Date: 20130927
  Receipt Date: 20130927
  Transmission Date: 20140515
  Serious: Yes (Other)
  Sender: FDA-Public Use
  Company Number: MX-JNJFOC-20130913390

PATIENT
  Age: 85 Year
  Sex: Female
  Weight: 86 kg

DRUGS (14)
  1. REMINYL ER [Suspect]
     Indication: DEMENTIA
     Route: 048
  2. CLOPIDOGREL [Concomitant]
     Route: 065
  3. NPH INSULIN [Concomitant]
     Route: 065
  4. SPIRONOLACTONE [Concomitant]
     Route: 065
  5. RANITIDINE HYDROCHLORIDE [Concomitant]
     Route: 065
  6. METOPROLOL [Concomitant]
     Route: 065
  7. LOSARTAN [Concomitant]
     Route: 065
  8. METFORMIN [Concomitant]
     Route: 065
  9. PRAVASTATIN [Concomitant]
     Route: 065
  10. TRIMEBUTINE [Concomitant]
     Route: 065
  11. SERTRALINE [Concomitant]
     Route: 065
  12. RISPERIDONE [Concomitant]
     Route: 065
  13. FUROSEMIDE [Concomitant]
     Route: 065
  14. ACETYLSALICYLIC ACID [Concomitant]
     Route: 065

REACTIONS (2)
  - Drug prescribing error [Not Recovered/Not Resolved]
  - Wrong technique in drug usage process [Unknown]
